FAERS Safety Report 20029910 (Version 2)
Quarter: 2022Q4

REPORT INFORMATION
  Report Type: Spontaneous
  Country: US (occurrence: US)
  Receive Date: 20211103
  Receipt Date: 20221115
  Transmission Date: 20230113
  Serious: No
  Sender: FDA-Public Use
  Company Number: US-SA-SAC20211029000505

PATIENT
  Sex: Male
  Weight: 80.28 kg

DRUGS (29)
  1. FABRAZYME [Suspect]
     Active Substance: AGALSIDASE BETA
     Indication: Lipidosis
     Dosage: 80 MG, QOW
     Route: 042
     Dates: start: 20170202
  2. FABRAZYME [Suspect]
     Active Substance: AGALSIDASE BETA
     Indication: Fabry^s disease
     Dosage: 80 MG, QOW
     Route: 042
     Dates: start: 20200314
  3. FINASTERIDE [Concomitant]
     Active Substance: FINASTERIDE
  4. FINASTERIDE [Concomitant]
     Active Substance: FINASTERIDE
  5. AMITRIPTYLINE HYDROCHLORIDE [Concomitant]
     Active Substance: AMITRIPTYLINE HYDROCHLORIDE
  6. MIRALAX [Concomitant]
     Active Substance: POLYETHYLENE GLYCOL 3350
  7. MIRALAX [Concomitant]
     Active Substance: POLYETHYLENE GLYCOL 3350
  8. SODIUM CHLORIDE [Concomitant]
     Active Substance: SODIUM CHLORIDE
  9. SODIUM CHLORIDE [Concomitant]
     Active Substance: SODIUM CHLORIDE
  10. STERILE WATER [Concomitant]
     Active Substance: WATER
  11. VITAMIN D3 [Concomitant]
     Active Substance: CHOLECALCIFEROL
  12. VITAMIN D3 [Concomitant]
     Active Substance: CHOLECALCIFEROL
  13. CALCIUM [Concomitant]
     Active Substance: CALCIUM
  14. CALCIUM [Concomitant]
     Active Substance: CALCIUM
  15. CIALIS [Concomitant]
     Active Substance: TADALAFIL
  16. CIALIS [Concomitant]
     Active Substance: TADALAFIL
  17. ASPIRIN [Concomitant]
     Active Substance: ASPIRIN
  18. VITAMINS [Concomitant]
     Active Substance: VITAMINS
  19. LOSARTAN [Concomitant]
     Active Substance: LOSARTAN
  20. LOSARTAN [Concomitant]
     Active Substance: LOSARTAN
  21. METOPROLOL [Concomitant]
     Active Substance: METOPROLOL
  22. NITROGLYCERIN [Concomitant]
     Active Substance: NITROGLYCERIN
     Route: 060
  23. ACETAMINOPHEN [Concomitant]
     Active Substance: ACETAMINOPHEN
  24. EPINEPHRINE [Concomitant]
     Active Substance: EPINEPHRINE
  25. EPINEPHRINE [Concomitant]
     Active Substance: EPINEPHRINE
  26. MAGNESIUM [Concomitant]
     Active Substance: MAGNESIUM
  27. ZINC [Concomitant]
     Active Substance: ZINC
  28. STOOL SOFTENER (DOCUSATE) [Concomitant]
     Active Substance: DOCUSATE
  29. SODIUM CHLORIDE [Concomitant]
     Active Substance: SODIUM CHLORIDE

REACTIONS (2)
  - Headache [Unknown]
  - Cough [Unknown]
